FAERS Safety Report 14149286 (Version 2)
Quarter: 2018Q1

REPORT INFORMATION
  Report Type: Report from Study
  Country: JP (occurrence: JP)
  Receive Date: 20171101
  Receipt Date: 20180228
  Transmission Date: 20180508
  Serious: Yes (Hospitalization)
  Sender: FDA-Public Use
  Company Number: JP-SA-2017SA210219

PATIENT
  Age: 65 Year
  Sex: Female

DRUGS (5)
  1. DARBEPOETIN ALFA [Suspect]
     Active Substance: DARBEPOETIN ALFA
     Route: 042
     Dates: start: 20160525, end: 20160713
  2. DARBEPOETIN ALFA [Suspect]
     Active Substance: DARBEPOETIN ALFA
     Route: 042
     Dates: start: 20170830, end: 20171025
  3. DARBEPOETIN ALFA [Suspect]
     Active Substance: DARBEPOETIN ALFA
     Route: 042
     Dates: start: 20171025, end: 20171115
  4. PHOSBLOCK [Suspect]
     Active Substance: FERRIC HYDROXIDE
     Route: 048
     Dates: start: 20150602
  5. DARBEPOETIN ALFA [Suspect]
     Active Substance: DARBEPOETIN ALFA
     Route: 042
     Dates: start: 20160713, end: 20170830

REACTIONS (3)
  - Neoplasm malignant [Recovering/Resolving]
  - Hospitalisation [Recovering/Resolving]
  - Neoplasm malignant [Recovering/Resolving]

NARRATIVE: CASE EVENT DATE: 20170525
